FAERS Safety Report 26154604 (Version 1)
Quarter: 2025Q4

REPORT INFORMATION
  Report Type: Spontaneous
  Country: EU (occurrence: EU)
  Receive Date: 20251215
  Receipt Date: 20251215
  Transmission Date: 20260117
  Serious: Yes (Hospitalization, Other)
  Sender: AMGEN
  Company Number: EU-ABBVIE-6570353

PATIENT
  Age: 44 Year
  Sex: Male

DRUGS (3)
  1. ADALIMUMAB [Suspect]
     Active Substance: ADALIMUMAB
     Indication: Crohn^s disease
     Dosage: FIRST ADMIN DATE-2016
     Route: 058
  2. ADALIMUMAB [Suspect]
     Active Substance: ADALIMUMAB
     Dosage: 40 MILLIGRAM, QWK
     Route: 058
     Dates: end: 201902
  3. CIPROFLOXACIN [Concomitant]
     Active Substance: CIPROFLOXACIN
     Indication: Product used for unknown indication
     Dosage: DRUG START DATE:04/2024
     Route: 065

REACTIONS (7)
  - Abscess intestinal [Unknown]
  - Haematochezia [Unknown]
  - Diarrhoea [Unknown]
  - Abnormal faeces [Unknown]
  - Pseudopolyp [Recovering/Resolving]
  - Pyrexia [Unknown]
  - Fistula discharge [Unknown]

NARRATIVE: CASE EVENT DATE: 20240101
